FAERS Safety Report 5143561-X (Version None)
Quarter: 2006Q4

REPORT INFORMATION
  Report Type: 
  Country: None (occurrence: None)
  Receive Date: 20061030
  Receipt Date: 20061017
  Transmission Date: 20070319
  Serious: Yes (Other)
  Sender: FDA-Public Use
  Company Number: CIP06002224

PATIENT
  Age: 61 Year
  Sex: Female

DRUGS (8)
  1. ACTONEL [Suspect]
     Indication: OSTEOPENIA
     Dosage: 35 MG ONCE WEEKLY, ORAL
     Route: 048
     Dates: start: 20040101, end: 20060801
  2. NEXIUM [Concomitant]
  3. CITRACAL (CALCIUM CITRATE) [Concomitant]
  4. NABUMETONE [Concomitant]
  5. LEVOXYL [Concomitant]
  6. PRINIVIL [Concomitant]
  7. ACETYLSALICYLIC ACID (ACETYLSALICYCLIC ACID) [Concomitant]
  8. OLEANDOMYCIN (OLEANDOMYCIN) [Concomitant]

REACTIONS (6)
  - ENDODONTIC PROCEDURE [None]
  - JOINT DISLOCATION [None]
  - MASTICATION DISORDER [None]
  - OSTEONECROSIS [None]
  - PAIN IN JAW [None]
  - TEMPOROMANDIBULAR JOINT SYNDROME [None]
